FAERS Safety Report 14668117 (Version 1)
Quarter: 2018Q1

REPORT INFORMATION
  Report Type: Spontaneous
  Country: US (occurrence: US)
  Receive Date: 20180320
  Receipt Date: 20180320
  Transmission Date: 20180509
  Serious: Yes (Hospitalization)
  Sender: FDA-Public Use
  Company Number: None

PATIENT
  Age: 85 Year
  Sex: Female
  Weight: 60.78 kg

DRUGS (2)
  1. HYDROCHLOROTHIAZIDE. [Suspect]
     Active Substance: HYDROCHLOROTHIAZIDE
     Indication: HYPERTENSION
     Route: 048
     Dates: start: 20171205, end: 20171219
  2. LISINOPRIL. [Suspect]
     Active Substance: LISINOPRIL
     Indication: HYPERTENSION
     Route: 048
     Dates: start: 20080725, end: 20180120

REACTIONS (8)
  - Chills [None]
  - Hypophagia [None]
  - Hypotension [None]
  - Syncope [None]
  - Cough [None]
  - Acute kidney injury [None]
  - Oropharyngeal pain [None]
  - Nasal congestion [None]

NARRATIVE: CASE EVENT DATE: 20171219
